FAERS Safety Report 24292258 (Version 1)
Quarter: 2024Q3

REPORT INFORMATION
  Report Type: Report from Study
  Country: ZA (occurrence: ZA)
  Receive Date: 20240906
  Receipt Date: 20240906
  Transmission Date: 20241017
  Serious: Yes (Hospitalization)
  Sender: REGENERON
  Company Number: ZA-BAYER-2024A124648

PATIENT
  Sex: Female

DRUGS (1)
  1. EYLEA [Suspect]
     Active Substance: AFLIBERCEPT
     Indication: Macular oedema
     Dosage: 1 DF, RIGHT EYE, SOLUTION FOR INJECTION, 40 MG/ML
     Dates: start: 20231124

REACTIONS (2)
  - Hospitalisation [Not Recovered/Not Resolved]
  - Asthenia [Unknown]
